FAERS Safety Report 6895348-5 (Version None)
Quarter: 2010Q3

REPORT INFORMATION
  Report Type: 
  Country: None (occurrence: None)
  Receive Date: 20100802
  Receipt Date: 20100723
  Transmission Date: 20110219
  Serious: Yes (Other)
  Sender: FDA-Public Use
  Company Number: GB-AMGEN-QUU427506

PATIENT
  Sex: Female

DRUGS (3)
  1. ENBREL [Suspect]
     Indication: RHEUMATOID ARTHRITIS
     Dates: start: 20090501
  2. IBUPROFEN [Concomitant]
     Dosage: UNKNOWN
  3. LEVOTHYROXINE SODIUM [Concomitant]

REACTIONS (1)
  - DIABETES MELLITUS [None]
